FAERS Safety Report 6070047-0 (Version None)
Quarter: 2009Q1

REPORT INFORMATION
  Report Type: 
  Country: None (occurrence: None)
  Receive Date: 20090209
  Receipt Date: 20090203
  Transmission Date: 20090719
  Serious: Yes (Death, Other)
  Sender: FDA-Public Use
  Company Number: PHBS2008GR05590

PATIENT
  Age: 76 Year
  Sex: Male

DRUGS (2)
  1. IMATINIB MESYLATE [Suspect]
     Indication: CHRONIC MYELOID LEUKAEMIA
     Dosage: 400 MG, QD
  2. INTERFERON ALFA [Concomitant]
     Indication: CHRONIC MYELOID LEUKAEMIA

REACTIONS (7)
  - ANAEMIA [None]
  - BLAST CRISIS IN MYELOGENOUS LEUKAEMIA [None]
  - BLOOD PRODUCT TRANSFUSION DEPENDENT [None]
  - CYTOGENETIC ABNORMALITY [None]
  - GASTROINTESTINAL HAEMORRHAGE [None]
  - MULTIPLE MYELOMA [None]
  - PLASMACYTOSIS [None]
